FAERS Safety Report 8923847 (Version 1)
Quarter: 2012Q4

REPORT INFORMATION
  Report Type: 
  Country: US (occurrence: US)
  Receive Date: 20121126
  Receipt Date: 20121126
  Transmission Date: 20130627
  Serious: No
  Sender: FDA-Public Use
  Company Number: US-BAYER-2012-121374

PATIENT
  Age: 23 Year
  Sex: Female

DRUGS (2)
  1. SAFYRAL [Suspect]
     Indication: BIRTH CONTROL
  2. SAFYRAL [Suspect]
     Indication: CYST OVARY

REACTIONS (3)
  - Drug dose omission [None]
  - Ovarian cyst [None]
  - Dysmenorrhoea [None]
